FAERS Safety Report 22531964 (Version 1)
Quarter: 2023Q2

REPORT INFORMATION
  Report Type: Spontaneous
  Country: US (occurrence: US)
  Receive Date: 20230607
  Receipt Date: 20230607
  Transmission Date: 20230721
  Serious: No
  Sender: FDA-Public Use
  Company Number: US-TEVA-2023-US-2891349

PATIENT
  Sex: Female

DRUGS (4)
  1. ALBUTEROL [Suspect]
     Active Substance: ALBUTEROL
     Indication: Bronchitis
     Route: 065
  2. ALBUTEROL [Suspect]
     Active Substance: ALBUTEROL
  3. ALBUTEROL [Suspect]
     Active Substance: ALBUTEROL
  4. ALBUTEROL [Suspect]
     Active Substance: ALBUTEROL

REACTIONS (5)
  - Hypoaesthesia oral [Recovered/Resolved]
  - Anxiety [Recovered/Resolved]
  - Tearfulness [Recovered/Resolved]
  - Muscle spasms [Recovered/Resolved]
  - Feeling abnormal [Recovered/Resolved]
